FAERS Safety Report 4687841-0 (Version None)
Quarter: 2005Q2

REPORT INFORMATION
  Report Type: 
  Country: None (occurrence: None)
  Receive Date: 20050610
  Receipt Date: 20050531
  Transmission Date: 20051028
  Serious: Yes (Hospitalization, Other)
  Sender: FDA-Public Use
  Company Number: JP-ABBOTT-05P-087-0302154-00

PATIENT
  Age: 16 Year
  Sex: Male

DRUGS (4)
  1. VALPROATE SODIUM [Suspect]
     Indication: AUTOMATISM EPILEPTIC
     Dosage: 300 TO APPROXIMATELY 900 MG
  2. VALPROATE SODIUM [Suspect]
     Dosage: NOT REPORTED
  3. VALPROATE SODIUM [Suspect]
     Dosage: 500 MG OVER TWO WEEKS
  4. CARBAMAZEPINE [Concomitant]
     Indication: HEADACHE
     Dosage: 200-300 MG

REACTIONS (6)
  - DEPERSONALISATION [None]
  - DEPRESSION [None]
  - ELECTROENCEPHALOGRAM ABNORMAL [None]
  - HYPERAMMONAEMIA [None]
  - OBSESSIVE-COMPULSIVE DISORDER [None]
  - SYNCOPE [None]
